FAERS Safety Report 4863900-4 (Version None)
Quarter: 2005Q4

REPORT INFORMATION
  Report Type: 
  Country: None (occurrence: None)
  Receive Date: 20051222
  Receipt Date: 20051219
  Transmission Date: 20060501
  Serious: Yes (Death, Hospitalization)
  Sender: FDA-Public Use
  Company Number: US-BRISTOL-MYERS SQUIBB COMPANY-13221254

PATIENT
  Age: 75 Year
  Sex: Male

DRUGS (1)
  1. GLUCOPHAGE [Suspect]

REACTIONS (1)
  - DEATH [None]
